FAERS Safety Report 14680674 (Version 1)
Quarter: 2018Q1

REPORT INFORMATION
  Report Type: Report from Study
  Country: BR (occurrence: BR)
  Receive Date: 20180326
  Receipt Date: 20180326
  Transmission Date: 20180509
  Serious: Yes (Death, Hospitalization)
  Sender: FDA-Public Use
  Company Number: BR-BAYER-2018-051185

PATIENT
  Age: 78 Year
  Sex: Female

DRUGS (2)
  1. INSULIN [Concomitant]
     Active Substance: INSULIN NOS
     Indication: DIABETES MELLITUS
  2. NEXAVAR [Suspect]
     Active Substance: SORAFENIB
     Indication: HEPATOCELLULAR CARCINOMA
     Dosage: 800 MG, QD
     Dates: start: 20180124, end: 20180216

REACTIONS (7)
  - Aspiration [Fatal]
  - Hepatic failure [Fatal]
  - Encephalopathy [Fatal]
  - Lung disorder [Fatal]
  - Hepatocellular carcinoma [Fatal]
  - Decreased appetite [Fatal]
  - Asthenia [None]
